FAERS Safety Report 6836175-4 (Version None)
Quarter: 2010Q3

REPORT INFORMATION
  Report Type: 
  Country: None (occurrence: None)
  Receive Date: 20100713
  Receipt Date: 20100706
  Transmission Date: 20110219
  Serious: Yes (Other)
  Sender: FDA-Public Use
  Company Number: GR-ROCHE-714258

PATIENT
  Age: 60 Year
  Sex: Female

DRUGS (3)
  1. BONIVA [Suspect]
     Indication: OSTEOPOROSIS
     Route: 048
     Dates: start: 20100601
  2. CALCIUM SUPPLEMENT [Concomitant]
     Indication: OSTEOPOROSIS
  3. PRILOSEC [Concomitant]
     Indication: PROPHYLAXIS

REACTIONS (5)
  - GASTROINTESTINAL DISORDER [None]
  - HEADACHE [None]
  - NAUSEA [None]
  - TACHYCARDIA [None]
  - VOMITING [None]
